FAERS Safety Report 14319076 (Version 1)
Quarter: 2017Q4

REPORT INFORMATION
  Report Type: Spontaneous
  Country: CZ (occurrence: CZ)
  Receive Date: 20171222
  Receipt Date: 20171222
  Transmission Date: 20180321
  Serious: Yes (Life-Threatening, Hospitalization)
  Sender: FDA-Public Use
  Company Number: CZ-MYLANLABS-2017M1080411

PATIENT
  Sex: Female

DRUGS (13)
  1. VASILIP [Concomitant]
     Active Substance: SIMVASTATIN
  2. KAPIDIN [Concomitant]
     Active Substance: LERCANIDIPINE HYDROCHLORIDE
  3. PHENYTOIN. [Suspect]
     Active Substance: PHENYTOIN
     Indication: PRODUCT USED FOR UNKNOWN INDICATION
     Route: 042
  4. LOKREN [Concomitant]
     Active Substance: BETAXOLOL HYDROCHLORIDE
  5. LEVETIRACETAM. [Suspect]
     Active Substance: LEVETIRACETAM
     Indication: PRODUCT USED FOR UNKNOWN INDICATION
     Dosage: 3000 MG A DAY
  6. DIAZEPAM. [Suspect]
     Active Substance: DIAZEPAM
     Indication: PRODUCT USED FOR UNKNOWN INDICATION
     Route: 042
  7. GLIQUIDONE [Concomitant]
     Active Substance: GLIQUIDONE
  8. TRITACE [Concomitant]
     Active Substance: RAMIPRIL
  9. VALPROIC ACID. [Suspect]
     Active Substance: VALPROIC ACID
     Indication: PRODUCT USED FOR UNKNOWN INDICATION
  10. GODASAL [Concomitant]
     Active Substance: ASPIRIN\GLYCINE
  11. CYNT (MOXONIDIN) [Concomitant]
     Active Substance: MOXONIDINE
  12. EUTHYROX [Concomitant]
     Active Substance: LEVOTHYROXINE SODIUM
  13. MILURIT [Concomitant]
     Active Substance: ALLOPURINOL
     Indication: GOUT

REACTIONS (2)
  - No adverse event [Unknown]
  - Drug ineffective [Unknown]
